FAERS Safety Report 8777854 (Version 2)
Quarter: 2012Q4

REPORT INFORMATION
  Report Type: 
  Country: DK (occurrence: DK)
  Receive Date: 20120912
  Receipt Date: 20121123
  Transmission Date: 20130627
  Serious: Yes (Life-Threatening)
  Sender: FDA-Public Use
  Company Number: PHHY2012DK078256

PATIENT
  Age: 75 Year
  Sex: Male
  Weight: 120 kg

DRUGS (2)
  1. TRILEPTAL [Suspect]
     Indication: TRIGEMINAL NEURALGIA
     Dosage: 150 mg, UNK
  2. TRILEPTAL [Suspect]
     Dosage: 600 mg, BID
     Route: 048
     Dates: start: 20120724, end: 20120820

REACTIONS (1)
  - Atrioventricular block complete [Unknown]
